FAERS Safety Report 12810228 (Version 1)
Quarter: 2016Q4

REPORT INFORMATION
  Report Type: Spontaneous
  Country: BR (occurrence: BR)
  Receive Date: 20161005
  Receipt Date: 20161005
  Transmission Date: 20170207
  Serious: Yes (Other)
  Sender: FDA-Public Use
  Company Number: BR-BAYER-2016-192332

PATIENT
  Age: 62 Year
  Sex: Female

DRUGS (10)
  1. ENALAPRIL [Suspect]
     Active Substance: ENALAPRIL
     Indication: BLOOD PRESSURE ABNORMAL
     Dosage: UNK
     Route: 048
     Dates: start: 1983
  2. CLARITIN [Suspect]
     Active Substance: LORATADINE
     Indication: RHINITIS ALLERGIC
  3. CLARITIN [Suspect]
     Active Substance: LORATADINE
     Indication: DRUG HYPERSENSITIVITY
     Dosage: 1 DF, UNK
     Route: 048
     Dates: start: 2000
  4. CALCIUM [Concomitant]
     Active Substance: CALCIUM
     Indication: INDURATION
     Dosage: 1 DF, QD
     Route: 048
  5. TIMOPTOL-XE [Suspect]
     Active Substance: TIMOLOL
     Indication: VISUAL IMPAIRMENT
     Dosage: 2 GTT, BID
     Route: 047
     Dates: start: 20160928, end: 20160928
  6. CLONAZEPAM. [Suspect]
     Active Substance: CLONAZEPAM
     Indication: DEPRESSION
     Dosage: .5 DF, QD
     Route: 048
  7. TIMOPTOL-XE [Suspect]
     Active Substance: TIMOLOL
     Indication: GLAUCOMA
     Dosage: 2 GTT, QD
     Route: 047
     Dates: start: 20160929
  8. CLONAZEPAM. [Suspect]
     Active Substance: CLONAZEPAM
     Indication: LABYRINTHITIS
  9. CALCIUM [Concomitant]
     Active Substance: CALCIUM
     Indication: OSTEOPOROSIS PROPHYLAXIS
  10. TIMOPTOL-XE [Suspect]
     Active Substance: TIMOLOL
     Indication: INTRAOCULAR PRESSURE INCREASED
     Dosage: 2 GTT, QD
     Route: 047
     Dates: start: 201601, end: 20160926

REACTIONS (11)
  - Drug dependence [Not Recovered/Not Resolved]
  - Drug dose omission [Unknown]
  - Visual acuity reduced [Not Recovered/Not Resolved]
  - Nausea [Recovered/Resolved]
  - Product use issue [Unknown]
  - Intraocular pressure fluctuation [Unknown]
  - Incorrect product storage [Unknown]
  - Expired product administered [Unknown]
  - Anxiety [Not Recovered/Not Resolved]
  - Abdominal pain [Recovered/Resolved]
  - Eye pruritus [Unknown]

NARRATIVE: CASE EVENT DATE: 2016
